FAERS Safety Report 23807400 (Version 1)
Quarter: 2024Q2

REPORT INFORMATION
  Report Type: Spontaneous
  Country: FR (occurrence: FR)
  Receive Date: 20240502
  Receipt Date: 20240502
  Transmission Date: 20240716
  Serious: Yes (Life-Threatening, Other)
  Sender: FDA-Public Use
  Company Number: FR-ALKEM LABORATORIES LIMITED-FR-ALKEM-2024-08921

PATIENT
  Age: 71 Year
  Sex: Female

DRUGS (2)
  1. VANCOMYCIN [Suspect]
     Active Substance: VANCOMYCIN
     Indication: Staphylococcal bacteraemia
     Dosage: UNK
     Route: 065
  2. Aminoside [Concomitant]
     Indication: Product used for unknown indication
     Dosage: UNK (1 DOSE)
     Route: 065

REACTIONS (1)
  - Renal tubular necrosis [Unknown]
